FAERS Safety Report 23986380 (Version 1)
Quarter: 2024Q2

REPORT INFORMATION
  Report Type: Spontaneous
  Country: US (occurrence: None)
  Receive Date: 20240618
  Receipt Date: 20240618
  Transmission Date: 20240716
  Serious: Yes (Hospitalization)
  Sender: FDA-Public Use
  Company Number: None

PATIENT
  Sex: Female
  Weight: 77 kg

DRUGS (3)
  1. CISPLATIN [Suspect]
     Active Substance: CISPLATIN
  2. GEMCITABINE HYDROCHLORIDE [Concomitant]
  3. Pegfilgrastim (Neulasta) [Concomitant]

REACTIONS (5)
  - Staphylococcal infection [None]
  - Leukocytosis [None]
  - Abdominal pain [None]
  - Dizziness [None]
  - Incision site pain [None]

NARRATIVE: CASE EVENT DATE: 20240607
